FAERS Safety Report 5204735-2 (Version None)
Quarter: 2007Q1

REPORT INFORMATION
  Report Type: 
  Country: None (occurrence: None)
  Receive Date: 20070110
  Receipt Date: 20060629
  Transmission Date: 20070707
  Serious: No
  Sender: FDA-Public Use
  Company Number: US-BRISTOL-MYERS SQUIBB COMPANY-13428834

PATIENT
  Age: 60 Year
  Sex: Male

DRUGS (5)
  1. ABILIFY [Suspect]
     Indication: SCHIZOPHRENIA
     Dosage: ABILIFY INITIAL DOSE 5 MG FOR APPROXIMATELY 1 YEAR INCREASED TO 10 MG 30 DAYS AGO.
     Route: 048
     Dates: start: 20060529
  2. LIBRIUM [Concomitant]
  3. PROVIGIL [Concomitant]
  4. ZYRTEC [Concomitant]
  5. ATENOLOL [Concomitant]

REACTIONS (1)
  - EYE DISORDER [None]
